FAERS Safety Report 6747891-7 (Version None)
Quarter: 2010Q2

REPORT INFORMATION
  Report Type: 
  Country: None (occurrence: None)
  Receive Date: 20100528
  Receipt Date: 20100518
  Transmission Date: 20101027
  Serious: Yes (Hospitalization)
  Sender: FDA-Public Use
  Company Number: US-ABBOTT-10P-163-0640715-00

PATIENT
  Sex: Male
  Weight: 88.53 kg

DRUGS (6)
  1. HUMIRA [Suspect]
     Indication: CROHN'S DISEASE
     Dates: start: 20080101
  2. NAPROXEN [Suspect]
     Indication: ARTHRALGIA
     Dates: end: 20100101
  3. PENTASA [Concomitant]
     Indication: CROHN'S DISEASE
  4. ENTOCORT EC [Concomitant]
     Indication: CROHN'S DISEASE
  5. VITAMIN B-12 [Concomitant]
     Indication: HYPOVITAMINOSIS
  6. MULTIPLE VITAMINS [Concomitant]
     Indication: VITAMIN SUPPLEMENTATION

REACTIONS (6)
  - ABDOMINAL DISTENSION [None]
  - ARTHRALGIA [None]
  - CROHN'S DISEASE [None]
  - INSOMNIA [None]
  - NAUSEA [None]
  - OVERWORK [None]
